FAERS Safety Report 14275353 (Version 1)
Quarter: 2017Q4

REPORT INFORMATION
  Report Type: Spontaneous
  Country: CN (occurrence: CN)
  Receive Date: 20171211
  Receipt Date: 20171211
  Transmission Date: 20180321
  Serious: Yes (Other)
  Sender: FDA-Public Use
  Company Number: CN-OTSUKA-2017_003079

PATIENT
  Age: 30 Year
  Sex: Female
  Weight: 49 kg

DRUGS (1)
  1. ABILIFY [Suspect]
     Active Substance: ARIPIPRAZOLE
     Indication: SCHIZOPHRENIA
     Dosage: 10 MG, QD
     Route: 048
     Dates: start: 20160907, end: 20160921

REACTIONS (1)
  - Tachycardia [Recovered/Resolved]

NARRATIVE: CASE EVENT DATE: 20160908
